FAERS Safety Report 19969775 (Version 1)
Quarter: 2021Q4

REPORT INFORMATION
  Report Type: Spontaneous
  Country: PL (occurrence: PL)
  Receive Date: 20211019
  Receipt Date: 20211019
  Transmission Date: 20220303
  Serious: Yes (Other)
  Sender: FDA-Public Use
  Company Number: 2021A768898

PATIENT
  Age: 72 Year
  Sex: Female

DRUGS (3)
  1. FASLODEX [Suspect]
     Active Substance: FULVESTRANT
     Indication: Product used for unknown indication
     Dosage: 250 MG, BID (2 X 250 MG)
     Route: 030
  2. KISQALI [Suspect]
     Active Substance: RIBOCICLIB
     Indication: HER2 negative breast cancer
     Dosage: 600 MG (FOR 21 DAYS, EVERY 28 DAYS)
     Route: 048
     Dates: start: 20210727
  3. KISQALI [Suspect]
     Active Substance: RIBOCICLIB
     Indication: HER2 negative breast cancer
     Dosage: 400 MG (FOR 21 DAYS, EVERY 28 DAYS)
     Route: 048

REACTIONS (4)
  - Granulocytopenia [Recovered/Resolved]
  - Neutropenia [Unknown]
  - Dyspnoea [Recovering/Resolving]
  - Transaminases increased [Unknown]
